FAERS Safety Report 4653970-0 (Version None)
Quarter: 2005Q2

REPORT INFORMATION
  Report Type: 
  Country: None (occurrence: None)
  Receive Date: 20050504
  Receipt Date: 20050426
  Transmission Date: 20051028
  Serious: Yes (Hospitalization)
  Sender: FDA-Public Use
  Company Number: 2005063807

PATIENT
  Sex: Male

DRUGS (1)
  1. ALDACTONE [Suspect]
     Indication: ILL-DEFINED DISORDER
     Dosage: (100 MG,), ORAL
     Route: 048
     Dates: start: 20041201, end: 20050101

REACTIONS (1)
  - FLUID RETENTION [None]
